FAERS Safety Report 14345137 (Version 13)
Quarter: 2019Q1

REPORT INFORMATION
  Report Type: Spontaneous
  Country: CA (occurrence: CA)
  Receive Date: 20180103
  Receipt Date: 20190312
  Transmission Date: 20190417
  Serious: Yes (Hospitalization, Other)
  Sender: FDA-Public Use
  Company Number: CA-CELLTRION INC.-2017CA017384

PATIENT

DRUGS (24)
  1. INFLECTRA [Suspect]
     Active Substance: INFLIXIMAB-DYYB
     Dosage: 400 MG, THEN EVERY 6 WEEKS
     Route: 042
     Dates: start: 20171012
  2. METAMUCIL [Concomitant]
     Active Substance: PLANTAGO SEED
     Dosage: UNK UNK, DAILY
  3. INFLECTRA [Suspect]
     Active Substance: INFLIXIMAB-DYYB
     Dosage: 300 MG, THEN EVERY 6 WEEKS
     Route: 065
     Dates: start: 20180301
  4. INFLECTRA [Suspect]
     Active Substance: INFLIXIMAB-DYYB
     Dosage: 300 MG, THEN EVERY 6 WEEKS
     Route: 065
     Dates: start: 20180301
  5. VITAMIN B12 [Concomitant]
     Active Substance: CYANOCOBALAMIN
     Dosage: ONCE EVERY 2 WEEKS
  6. REACTINE [CETIRIZINE HYDROCHLORIDE] [Concomitant]
     Active Substance: CETIRIZINE HYDROCHLORIDE
     Dosage: 10 MG, DAILY
     Route: 048
  7. INFLECTRA [Suspect]
     Active Substance: INFLIXIMAB-DYYB
     Dosage: 300 MG, THEN EVERY 6 WEEKS
     Route: 065
     Dates: start: 20181023
  8. VITAMIN D [Concomitant]
     Active Substance: CHOLECALCIFEROL
     Dosage: 2 DROP, DAILY
  9. VITALUX [Concomitant]
     Active Substance: MINERALS\VITAMINS
     Dosage: UNK UNK, DAILY
     Route: 048
  10. IRON [Concomitant]
     Active Substance: IRON
     Dosage: 300 MG, DAILY
     Route: 048
  11. INFLECTRA [Suspect]
     Active Substance: INFLIXIMAB-DYYB
     Dosage: 400 MG, THEN EVERY 6 WEEKS
     Route: 065
     Dates: start: 20171202
  12. INFLECTRA [Suspect]
     Active Substance: INFLIXIMAB-DYYB
     Dosage: 300 MG, THEN EVERY 6 WEEKS
     Route: 042
     Dates: start: 20181130
  13. GABAPENTIN. [Concomitant]
     Active Substance: GABAPENTIN
     Dosage: 3 DF, TID
  14. CANDESARTAN. [Concomitant]
     Active Substance: CANDESARTAN
     Dosage: 8 MG
  15. INFLECTRA [Suspect]
     Active Substance: INFLIXIMAB-DYYB
     Dosage: 300 MG, THEN EVERY 6 WEEKS
     Route: 042
     Dates: start: 20190114
  16. METOPROLOL. [Concomitant]
     Active Substance: METOPROLOL
     Dosage: 50 MG, BID, 1/2 TAB
     Route: 048
  17. TYLENOL EXTRA STRENGTH [Concomitant]
     Active Substance: ACETAMINOPHEN
     Dosage: 500 MG, 2 TABS EVERY 4 HOURS
  18. LANTUS [Concomitant]
     Active Substance: INSULIN GLARGINE
     Dosage: 4 UNITS AT BED TIME
  19. INFLECTRA [Suspect]
     Active Substance: INFLIXIMAB-DYYB
     Indication: COLITIS ULCERATIVE
     Dosage: 400 MG, THEN EVERY 6 WEEKS
     Route: 042
     Dates: start: 20170706, end: 20171207
  20. INFLECTRA [Suspect]
     Active Substance: INFLIXIMAB-DYYB
     Dosage: 400 MG THEN EVERY 6 WEEKS
     Route: 065
     Dates: start: 20171202
  21. INFLECTRA [Suspect]
     Active Substance: INFLIXIMAB-DYYB
     Dosage: 300 MG, THEN EVERY 6 WEEKS
     Route: 065
     Dates: start: 20180118
  22. INFLECTRA [Suspect]
     Active Substance: INFLIXIMAB-DYYB
     Dosage: 400 MG, CYCLIC (E VERY 6 WEEKS)
     Route: 042
     Dates: start: 20190226
  23. LOMOTIL [Concomitant]
     Active Substance: ATROPINE SULFATE\DIPHENOXYLATE HYDROCHLORIDE
     Dosage: .25 MG
  24. CREON [Concomitant]
     Active Substance: PANCRELIPASE AMYLASE\PANCRELIPASE LIPASE\PANCRELIPASE PROTEASE
     Dosage: 25 MG

REACTIONS (19)
  - Product use issue [Unknown]
  - Atelectasis [Unknown]
  - Hypotension [Unknown]
  - Crohn^s disease [Unknown]
  - Arrhythmia [Unknown]
  - Catheter site inflammation [Unknown]
  - Weight increased [Unknown]
  - Large intestine perforation [Unknown]
  - Cataract [Unknown]
  - Weight decreased [Recovering/Resolving]
  - Blood pressure fluctuation [Unknown]
  - Photophobia [Unknown]
  - Confusional state [Unknown]
  - Oxygen saturation decreased [Unknown]
  - Polyp [Unknown]
  - Catheter site erythema [Unknown]
  - Pain [Unknown]
  - Condition aggravated [Unknown]
  - Arthralgia [Unknown]

NARRATIVE: CASE EVENT DATE: 20170706
